FAERS Safety Report 19813854 (Version 1)
Quarter: 2021Q3

REPORT INFORMATION
  Report Type: Spontaneous
  Country: LT (occurrence: LT)
  Receive Date: 20210909
  Receipt Date: 20210909
  Transmission Date: 20211014
  Serious: Yes (Other)
  Sender: FDA-Public Use
  Company Number: LT-BAYER-2021-204997

PATIENT
  Age: 64 Year
  Sex: Male

DRUGS (1)
  1. STIVARGA [Suspect]
     Active Substance: REGORAFENIB
     Indication: RECTAL CANCER METASTATIC
     Dosage: UNK
     Dates: start: 20200323, end: 20210506

REACTIONS (13)
  - Hepatic cancer metastatic [None]
  - Carcinoid syndrome [None]
  - Palmar-plantar erythrodysaesthesia syndrome [None]
  - Necrotic lymphadenopathy [None]
  - Diarrhoea [None]
  - Thrombocytopenia [None]
  - Abdominal distension [Not Recovered/Not Resolved]
  - Hepatic infiltration eosinophilic [None]
  - Rectal cancer [None]
  - Gastric ulcer [None]
  - Lung cancer metastatic [None]
  - Periportal oedema [None]
  - Abdominal pain upper [Not Recovered/Not Resolved]

NARRATIVE: CASE EVENT DATE: 20200907
